FAERS Safety Report 9669924 (Version 3)
Quarter: 2013Q4

REPORT INFORMATION
  Report Type: Spontaneous
  Country: US (occurrence: None)
  Receive Date: 20131104
  Receipt Date: 20131125
  Transmission Date: 20140711
  Serious: Yes (Death, Hospitalization)
  Sender: FDA-Public Use
  Company Number: AUR-APL-2013-08984

PATIENT
  Age: 91 Year
  Sex: Female

DRUGS (5)
  1. PIPERACILLIN+TAZOBACTAM [Suspect]
     Indication: CHOLECYSTITIS ACUTE
  2. VANCOMYCIN [Suspect]
     Indication: PRODUCT USED FOR UNKNOWN INDICATION
  3. CEFTAZIDIME (CEFTAZIDIME) [Suspect]
     Indication: PRODUCT USED FOR UNKNOWN INDICATION
  4. AMPICILLIN+SULBACTAM [Suspect]
     Indication: PRODUCT USED FOR UNKNOWN INDICATION
  5. AUGMENTIN [Suspect]
     Indication: PRODUCT USED FOR UNKNOWN INDICATION

REACTIONS (1)
  - Linear IgA disease [None]
